FAERS Safety Report 22773716 (Version 3)
Quarter: 2024Q3

REPORT INFORMATION
  Report Type: Spontaneous
  Country: US (occurrence: US)
  Receive Date: 20230801
  Receipt Date: 20240718
  Transmission Date: 20241017
  Serious: No
  Sender: PFIZER
  Company Number: US-PFIZER INC-202300213637

PATIENT
  Age: 84 Year
  Sex: Male
  Weight: 89.81 kg

DRUGS (2)
  1. TESTOSTERONE CYPIONATE [Suspect]
     Active Substance: TESTOSTERONE CYPIONATE
     Indication: Pituitary tumour
     Dosage: 200 MG/ML
  2. TESTOSTERONE CYPIONATE [Suspect]
     Active Substance: TESTOSTERONE CYPIONATE
     Indication: Androgen deficiency
     Dosage: 1.3 ML, 2X/WEEK
     Route: 030

REACTIONS (1)
  - Drug ineffective [Unknown]
